FAERS Safety Report 8326189-X (Version None)
Quarter: 2012Q2

REPORT INFORMATION
  Report Type: 
  Country: None (occurrence: None)
  Receive Date: 20120427
  Receipt Date: 20120412
  Transmission Date: 20120825
  Serious: Yes (Other)
  Sender: FDA-Public Use
  Company Number: 2011MA003518

PATIENT
  Age: 54 Year
  Sex: Female
  Weight: 82.5547 kg

DRUGS (90)
  1. METOCLOPRAMIDE [Suspect]
     Indication: GASTROOESOPHAGEAL REFLUX DISEASE
     Dosage: 10 MG;QID;PO
     Route: 048
     Dates: start: 20020118, end: 20090601
  2. METOCLOPRAMIDE [Suspect]
     Indication: IMPAIRED GASTRIC EMPTYING
     Dosage: 10 MG;QID;PO
     Route: 048
     Dates: start: 20020118, end: 20090601
  3. DIFLUCAN [Concomitant]
  4. EPIDURAL INJECTIONS [Concomitant]
  5. IBUPROFEN TABLETS [Concomitant]
  6. MELOXICAM [Concomitant]
  7. MOTRIN [Concomitant]
  8. NASONEX [Concomitant]
  9. PENICILLIN VK [Concomitant]
  10. RITALIN [Concomitant]
  11. RYZOLT [Concomitant]
  12. STEROID INJECTIONS [Concomitant]
  13. TRAMADOL HYDROCHLORIDE [Concomitant]
  14. VALIUM [Concomitant]
  15. VICODIN [Concomitant]
  16. ZITHROMAX [Concomitant]
  17. ANTIBIOTICS [Concomitant]
  18. BIAXIN [Concomitant]
  19. CEPHALEXIN [Concomitant]
  20. DOXYCYCLINE [Concomitant]
  21. LEVAQUIN [Concomitant]
  22. LEXAPRO [Concomitant]
  23. MINOCYCLINE HCL [Concomitant]
  24. PLAVIX [Concomitant]
  25. SULFAMETHOXAZOLE AND TRIMETHOPRIM [Concomitant]
  26. TYLENOL ARTHRITIS [Concomitant]
  27. WARFARIN SODIUM [Concomitant]
  28. ADDERALL 5 [Concomitant]
  29. BUMETANIDE [Concomitant]
  30. CYCLOBENZAPRINE [Concomitant]
  31. GUAIFENESIN [Concomitant]
  32. HYDROCODONE BITARTRATE AND ACETAMINOPHEN [Concomitant]
  33. MICARDIS [Concomitant]
  34. MOBIC [Concomitant]
  35. NEURONTIN [Concomitant]
  36. OMNICEF [Concomitant]
  37. PROZAC [Concomitant]
  38. STRATTERA [Concomitant]
  39. ALLEGRA [Concomitant]
  40. ASPIRIN [Concomitant]
  41. CELEBREX [Concomitant]
  42. LUNESTA [Concomitant]
  43. NEXIUM [Concomitant]
  44. OTC ENZYMES [Concomitant]
  45. PAXIL [Concomitant]
  46. PEPCID [Concomitant]
  47. PROAIR HFA [Concomitant]
  48. RHINOCORT [Concomitant]
  49. ULTRAM [Concomitant]
  50. VITAMIN D [Concomitant]
  51. BENZONATATE [Concomitant]
  52. CIPROFLOXACIN [Concomitant]
  53. FLUCONAZOLE [Concomitant]
  54. OXYCODONE HCL AND ACETAMINOPHEN [Concomitant]
  55. PERCOCET [Concomitant]
  56. TEGRETOL [Concomitant]
  57. VIOXX [Concomitant]
  58. WELLBUTRIN [Concomitant]
  59. AMOXICILLIN [Concomitant]
  60. AUGMENTIN [Concomitant]
  61. CARBAMAZEPINE [Concomitant]
  62. CLINDAMYCIN [Concomitant]
  63. CLOTRIMAZOLE [Concomitant]
  64. LISINOPRIL [Concomitant]
  65. ORTHO TRI-CYCLEN [Concomitant]
  66. PSEUDOVENT [Concomitant]
  67. SYNTHROID [Concomitant]
  68. ACIPHEX [Concomitant]
  69. AZITHROMYCIN [Concomitant]
  70. CLONIDINE [Concomitant]
  71. FIORICET [Concomitant]
  72. FLEXERIL [Concomitant]
  73. LOVENOX [Concomitant]
  74. LYRICA [Concomitant]
  75. PHENAVENT [Concomitant]
  76. PHENYTEK [Concomitant]
  77. ALBUTEROL [Concomitant]
  78. ALLERGY SHOTS [Concomitant]
  79. ASTELIN [Concomitant]
  80. BEXTRA [Concomitant]
  81. CAFFEINE PILLS [Concomitant]
  82. CYMBALTA [Concomitant]
  83. FEXOFENADINE [Concomitant]
  84. HYDROCHLOROTHIAZIDE [Concomitant]
  85. HYDROXYZINE [Concomitant]
  86. METHYLPREDNISOLONE ACETATE [Concomitant]
  87. MIRAPEX [Concomitant]
  88. MYCELEX [Concomitant]
  89. TOPAMAX [Concomitant]
  90. TUSSIONEX [Concomitant]

REACTIONS (67)
  - TARDIVE DYSKINESIA [None]
  - SIMPLE PARTIAL SEIZURES [None]
  - GASTRITIS [None]
  - ORAL CANDIDIASIS [None]
  - SPINAL COLUMN STENOSIS [None]
  - METAPLASIA [None]
  - DYSPLASIA [None]
  - HYPERTENSION [None]
  - ECONOMIC PROBLEM [None]
  - CEREBROVASCULAR ACCIDENT [None]
  - RASH [None]
  - NERVOUSNESS [None]
  - DEMYELINATION [None]
  - INTERVERTEBRAL DISC PROTRUSION [None]
  - ALLERGIC COLITIS [None]
  - DIABETES MELLITUS [None]
  - TEMPOROMANDIBULAR JOINT SYNDROME [None]
  - HYPOAESTHESIA [None]
  - DYSKINESIA [None]
  - BACK PAIN [None]
  - GLIOSIS [None]
  - ANEURYSM [None]
  - HYPOTHYROIDISM [None]
  - ANXIETY [None]
  - TONGUE DISORDER [None]
  - CERVICAL SPINAL STENOSIS [None]
  - TRIGGER FINGER [None]
  - INSOMNIA [None]
  - DIZZINESS [None]
  - LACUNAR INFARCTION [None]
  - EXTRAPYRAMIDAL DISORDER [None]
  - ANHEDONIA [None]
  - BRAIN STEM STROKE [None]
  - BARRETT'S OESOPHAGUS [None]
  - FACIAL PAIN [None]
  - OSTEOARTHRITIS [None]
  - CHOREA [None]
  - FATIGUE [None]
  - URETHRAL STENOSIS [None]
  - EMOTIONAL DISORDER [None]
  - HYPERMOBILITY SYNDROME [None]
  - SPINAL OSTEOARTHRITIS [None]
  - WEIGHT DECREASED [None]
  - ANTITHROMBIN III INCREASED [None]
  - AKATHISIA [None]
  - DEEP VEIN THROMBOSIS [None]
  - PARAESTHESIA [None]
  - DYSTONIA [None]
  - TREMOR [None]
  - PARKINSON'S DISEASE [None]
  - TENDERNESS [None]
  - CANDIDIASIS [None]
  - HYPERSENSITIVITY [None]
  - SINUS DISORDER [None]
  - MUSCULOSKELETAL PAIN [None]
  - PROTEIN S INCREASED [None]
  - CAROTID ARTERY DISEASE [None]
  - TIBIA FRACTURE [None]
  - NECK PAIN [None]
  - MYALGIA [None]
  - COLITIS [None]
  - DEFORMITY [None]
  - ISCHAEMIA [None]
  - CHOLELITHIASIS [None]
  - CEREBRAL INFARCTION [None]
  - CAROTID ARTERY STENOSIS [None]
  - MENISCUS LESION [None]
